FAERS Safety Report 17260780 (Version 1)
Quarter: 2020Q1

REPORT INFORMATION
  Report Type: Spontaneous
  Country: US (occurrence: US)
  Receive Date: 20200113
  Receipt Date: 20200113
  Transmission Date: 20200409
  Serious: No
  Sender: FDA-Public Use
  Company Number: US-PHARMING-PHAUS2020000003

PATIENT

DRUGS (2)
  1. RUCONEST [Suspect]
     Active Substance: HUMAN C1-ESTERASE INHIBITOR
     Indication: HEREDITARY ANGIOEDEMA
     Dosage: 4200 IU INTERNATIONAL UNIT(S), AS NEEDED
     Route: 042
     Dates: start: 201903
  2. TAKHZYRO [Concomitant]
     Active Substance: LANADELUMAB-FLYO
     Indication: PRODUCT USED FOR UNKNOWN INDICATION

REACTIONS (1)
  - Overdose [Unknown]

NARRATIVE: CASE EVENT DATE: 20191209
